FAERS Safety Report 14223508 (Version 2)
Quarter: 2018Q1

REPORT INFORMATION
  Report Type: Report from Study
  Country: LB (occurrence: LB)
  Receive Date: 20171124
  Receipt Date: 20180125
  Transmission Date: 20180508
  Serious: Yes (Hospitalization)
  Sender: FDA-Public Use
  Company Number: PHHY2017LB170258

PATIENT
  Age: 50 Year
  Sex: Male

DRUGS (2)
  1. COSENTYX [Suspect]
     Active Substance: SECUKINUMAB
     Dosage: 300 MG, QW (300 MG ONE WEEKLY FOR 5 CONSECUTIVE WEEKS AND THEN 300 MG ONCE A MONTH)
     Route: 058
     Dates: start: 20171115, end: 201712
  2. COSENTYX [Suspect]
     Active Substance: SECUKINUMAB
     Indication: PSORIASIS
     Dosage: 300 MG, QW (300 MG ONE WEEKLY FOR 5 CONSECUTIVE WEEKS AND THEN 300 MG ONCE A MONTH)
     Route: 058
     Dates: start: 20170816

REACTIONS (5)
  - Procedural pain [Unknown]
  - Acne [Recovering/Resolving]
  - Anal abscess [Unknown]
  - Furuncle [Unknown]
  - Staphylococcus test positive [Unknown]

NARRATIVE: CASE EVENT DATE: 201801
